FAERS Safety Report 4693875-2 (Version None)
Quarter: 2005Q2

REPORT INFORMATION
  Report Type: 
  Country: None (occurrence: None)
  Receive Date: 20050617
  Receipt Date: 19971201
  Transmission Date: 20051028
  Serious: Yes (Disabling)
  Sender: FDA-Public Use
  Company Number: US-MERCK-97120063

PATIENT
  Age: 72 Year
  Sex: Female

DRUGS (11)
  1. FOSAMAX [Suspect]
     Indication: OSTEOPOROSIS
     Route: 048
     Dates: start: 19970901, end: 19971124
  2. FOSAMAX [Suspect]
     Route: 048
     Dates: start: 19990101, end: 20050101
  3. COZAAR [Concomitant]
     Route: 048
     Dates: start: 19930101
  4. HYDROCHLOROTHIAZIDE [Concomitant]
     Route: 065
  5. MIACALCIN [Concomitant]
     Route: 065
  6. CLONIDINE [Concomitant]
     Route: 065
  7. ATENOLOL [Concomitant]
     Route: 065
  8. DETROL [Concomitant]
     Route: 065
  9. POTASSIUM (UNSPECIFIED) [Concomitant]
     Route: 065
  10. CALCIUM (UNSPECIFIED) [Concomitant]
     Route: 065
  11. VITAMINS (UNSPECIFIED) [Concomitant]
     Route: 065

REACTIONS (5)
  - ARTHRALGIA [None]
  - ARTHRITIS [None]
  - DRUG INEFFECTIVE [None]
  - PAIN IN EXTREMITY [None]
  - SHOULDER PAIN [None]
